FAERS Safety Report 4372100-6 (Version None)
Quarter: 2004Q2

REPORT INFORMATION
  Report Type: 
  Country: None (occurrence: None)
  Receive Date: 20040603
  Receipt Date: 20040603
  Transmission Date: 20050107
  Serious: Yes (Other)
  Sender: FDA-Public Use
  Company Number: None

PATIENT
  Age: 40 Year
  Sex: Female
  Weight: 81.6475 kg

DRUGS (1)
  1. EFFEXOR XR [Suspect]
     Indication: DEPRESSION
     Dosage: 1 DAILY ORAL
     Route: 048
     Dates: start: 20030501, end: 20040530

REACTIONS (9)
  - DISTURBANCE IN ATTENTION [None]
  - DIZZINESS [None]
  - EYE MOVEMENT DISORDER [None]
  - HYPERTONIA [None]
  - INSOMNIA [None]
  - NIGHTMARE [None]
  - TREATMENT NONCOMPLIANCE [None]
  - VERTIGO [None]
  - VISION BLURRED [None]
